FAERS Safety Report 15379301 (Version 2)
Quarter: 2018Q3

REPORT INFORMATION
  Report Type: Spontaneous
  Country: US (occurrence: US)
  Receive Date: 20180913
  Receipt Date: 20180918
  Transmission Date: 20181010
  Serious: No
  Sender: FDA-Public Use
  Company Number: US-PFIZER INC-2018365892

PATIENT
  Age: 76 Year
  Sex: Female
  Weight: 44.9 kg

DRUGS (1)
  1. LATANOPROST. [Suspect]
     Active Substance: LATANOPROST
     Indication: GLAUCOMA
     Dosage: 2 GTT, 1X/DAY (ONE DROP AT NIGHT IN EACH EYE)
     Route: 047

REACTIONS (3)
  - Epistaxis [Unknown]
  - Nasal dryness [Unknown]
  - Eye irritation [Unknown]

NARRATIVE: CASE EVENT DATE: 201807
